FAERS Safety Report 6761263-0 (Version None)
Quarter: 2010Q2

REPORT INFORMATION
  Report Type: 
  Country: None (occurrence: None)
  Receive Date: 20100608
  Receipt Date: 20100528
  Transmission Date: 20101027
  Serious: Yes (Other)
  Sender: FDA-Public Use
  Company Number: DE-JNJCH-2010013264

PATIENT
  Age: 16 Year
  Sex: Female

DRUGS (4)
  1. ZYRTEC [Suspect]
     Indication: DRUG USE FOR UNKNOWN INDICATION
     Route: 065
  2. ORAL CONTRACEPTIVE NOS [Suspect]
     Indication: DRUG USE FOR UNKNOWN INDICATION
     Dosage: TEXT:20 TABLETS
     Route: 065
  3. MAGNESIUM [Suspect]
     Indication: DRUG USE FOR UNKNOWN INDICATION
     Dosage: TEXT:NI
     Route: 065
  4. HOMEOPATIC PREPARATION [Suspect]
     Indication: DRUG USE FOR UNKNOWN INDICATION
     Dosage: TEXT:NI
     Route: 065

REACTIONS (2)
  - INTENTIONAL SELF-INJURY [None]
  - VENTRICULAR EXTRASYSTOLES [None]
